FAERS Safety Report 5312649-2 (Version None)
Quarter: 2007Q2

REPORT INFORMATION
  Report Type: 
  Country: None (occurrence: None)
  Receive Date: 20070430
  Receipt Date: 20070126
  Transmission Date: 20071010
  Serious: No
  Sender: FDA-Public Use
  Company Number: 2007UW01694

PATIENT
  Age: 83 Year
  Sex: Female
  Weight: 35.8 kg

DRUGS (6)
  1. NEXIUM [Suspect]
     Indication: GASTROOESOPHAGEAL REFLUX DISEASE
     Route: 048
     Dates: start: 20061001
  2. XANAX [Concomitant]
  3. RISPERDAL [Concomitant]
  4. PROPOXYPHENE HYDROCHLORIDE [Concomitant]
  5. CALCIUM PLUS D [Concomitant]
  6. CERTAGEN [Concomitant]

REACTIONS (2)
  - FALL [None]
  - FEMUR FRACTURE [None]
